FAERS Safety Report 13803211 (Version 1)
Quarter: 2017Q3

REPORT INFORMATION
  Report Type: Spontaneous
  Country: GB (occurrence: GB)
  Receive Date: 20170728
  Receipt Date: 20170728
  Transmission Date: 20171127
  Serious: Yes (Other)
  Sender: FDA-Public Use
  Company Number: GB-AUROBINDO-AUR-APL-2017-37522

PATIENT
  Age: 76 Year
  Sex: Male
  Weight: 78 kg

DRUGS (5)
  1. CLOPIDOGREL [Suspect]
     Active Substance: CLOPIDOGREL BISULFATE
     Indication: CORONARY ARTERY DISEASE
     Dosage: 75 MG, UNK
     Route: 065
     Dates: start: 201201
  2. SIMVASTATIN 20MG [Suspect]
     Active Substance: SIMVASTATIN
     Indication: CORONARY ARTERY DISEASE
     Dosage: STARTED MANY YEARS AGO
     Route: 065
  3. BISOPROLOL 2.5 MG [Suspect]
     Active Substance: BISOPROLOL
     Indication: CORONARY ARTERY DISEASE
     Dosage: 2.5 MG, UNK
     Route: 065
     Dates: start: 201201
  4. RAMIPRIL 5MG [Suspect]
     Active Substance: RAMIPRIL
     Indication: CORONARY ARTERY DISEASE
     Dosage: 5 MG, UNK
     Route: 065
     Dates: start: 201201
  5. LANSOPRAZOLE. [Suspect]
     Active Substance: LANSOPRAZOLE
     Indication: CORONARY ARTERY DISEASE
     Dosage: 30 MG, UNK
     Dates: start: 201201

REACTIONS (3)
  - Chest pain [Not Recovered/Not Resolved]
  - Nightmare [Not Recovered/Not Resolved]
  - Palpitations [Not Recovered/Not Resolved]
